FAERS Safety Report 9629737 (Version 7)
Quarter: 2014Q1

REPORT INFORMATION
  Report Type: Spontaneous
  Country: FR (occurrence: FR)
  Receive Date: 20131017
  Receipt Date: 20140114
  Transmission Date: 20141002
  Serious: Yes (Other)
  Sender: FDA-Public Use
  Company Number: FR-BIOMARINAP-FR-2013-101704

PATIENT
  Age: 9 Year
  Sex: Male

DRUGS (2)
  1. ALDURAZYME [Suspect]
     Indication: MUCOPOLYSACCHARIDOSIS I
     Dosage: 86 IU/KG, UNK
     Route: 042
     Dates: start: 200807
  2. POLARAMINE [Concomitant]
     Indication: PREMEDICATION
     Dosage: UNK
     Dates: start: 20131009

REACTIONS (7)
  - Infusion related reaction [Not Recovered/Not Resolved]
  - Face oedema [Recovered/Resolved]
  - Dyspnoea [Not Recovered/Not Resolved]
  - Eye pruritus [Recovered/Resolved]
  - Urticaria [Recovered/Resolved]
  - Cough [Recovered/Resolved]
  - Erythema [Recovered/Resolved]
